FAERS Safety Report 8846064 (Version 1)
Quarter: 2012Q4

REPORT INFORMATION
  Report Type: 
  Country: US (occurrence: US)
  Receive Date: 20121017
  Receipt Date: 20121017
  Transmission Date: 20130627
  Serious: Yes (Hospitalization)
  Sender: FDA-Public Use
  Company Number: PHEH2012US014763

PATIENT
  Age: 67 Year
  Sex: Female

DRUGS (8)
  1. AFINITOR [Suspect]
     Dosage: 10 mg, QD
     Route: 048
     Dates: start: 20120726, end: 20121004
  2. TAMOXIFEN [Concomitant]
     Dosage: 20 mg, UNK
  3. MORPHINE [Concomitant]
  4. LYRICA [Concomitant]
  5. LISINOPRIL [Concomitant]
  6. SOMA [Concomitant]
  7. WARFARIN [Concomitant]
  8. HYDROMORPHONE [Concomitant]

REACTIONS (10)
  - Arrhythmia [Recovered/Resolved]
  - Renal failure [Recovered/Resolved]
  - Electrolyte depletion [Recovered/Resolved]
  - Haematochezia [Recovered/Resolved]
  - Nausea [Recovered/Resolved]
  - Vomiting [Recovered/Resolved]
  - Diarrhoea [Recovered/Resolved]
  - Abdominal pain upper [Unknown]
  - Flatulence [Unknown]
  - Eructation [Unknown]
